FAERS Safety Report 14229055 (Version 1)
Quarter: 2017Q4

REPORT INFORMATION
  Report Type: Spontaneous
  Country: US (occurrence: US)
  Receive Date: 20171128
  Receipt Date: 20171128
  Transmission Date: 20180321
  Serious: No
  Sender: FDA-Public Use
  Company Number: US-ACCORD-059348

PATIENT
  Age: 62 Year
  Sex: Female
  Weight: 52.16 kg

DRUGS (2)
  1. SERTRALINE ACCORD [Suspect]
     Active Substance: SERTRALINE HYDROCHLORIDE
     Indication: ANXIETY
     Dosage: STRENGTH: 50 MG
     Route: 048
  2. CLONAZEPAM. [Concomitant]
     Active Substance: CLONAZEPAM

REACTIONS (3)
  - Incorrect dose administered [Unknown]
  - Product substitution issue [Unknown]
  - Drug ineffective [Unknown]
